FAERS Safety Report 19194583 (Version 1)
Quarter: 2021Q2

REPORT INFORMATION
  Report Type: Spontaneous
  Country: HR (occurrence: HR)
  Receive Date: 20210429
  Receipt Date: 20210429
  Transmission Date: 20210717
  Serious: Yes (Other)
  Sender: FDA-Public Use
  Company Number: HR-BAYER-2021-128532

PATIENT
  Age: 14 Year
  Sex: Female

DRUGS (3)
  1. CONCOR [Suspect]
     Active Substance: BISOPROLOL FUMARATE
     Dosage: 20 TBL
     Route: 048
     Dates: start: 20210303, end: 20210303
  2. HEFEROL [HYDROGEN PEROXIDE] [Suspect]
     Active Substance: HYDROGEN PEROXIDE
     Dosage: 30 TBL HEFEROLA (350 MG FE)
     Route: 048
     Dates: start: 20210303, end: 20210303
  3. CLARITINE 10 MG [Suspect]
     Active Substance: LORATADINE
     Dosage: 7 TBL
     Route: 048
     Dates: start: 20210303, end: 20210303

REACTIONS (4)
  - Mydriasis [Unknown]
  - Slow response to stimuli [Unknown]
  - Suicide attempt [Unknown]
  - Intentional overdose [Unknown]

NARRATIVE: CASE EVENT DATE: 20210303
